FAERS Safety Report 17299100 (Version 3)
Quarter: 2020Q2

REPORT INFORMATION
  Report Type: Spontaneous
  Country: US (occurrence: US)
  Receive Date: 20200121
  Receipt Date: 20200421
  Transmission Date: 20200713
  Serious: Yes (Other)
  Sender: FDA-Public Use
  Company Number: US-JNJFOC-20200124855

PATIENT
  Age: 93 Year
  Sex: Male

DRUGS (11)
  1. ERLEADA [Suspect]
     Active Substance: APALUTAMIDE
     Indication: PRODUCT USED FOR UNKNOWN INDICATION
     Route: 048
     Dates: start: 20191019, end: 20191105
  2. PRAVASTATIN. [Concomitant]
     Active Substance: PRAVASTATIN
     Route: 048
  3. ERLEADA [Suspect]
     Active Substance: APALUTAMIDE
     Route: 048
     Dates: start: 20191202, end: 20191226
  4. TIZANIDINE. [Concomitant]
     Active Substance: TIZANIDINE
     Indication: LIMB DISCOMFORT
     Route: 048
  5. FUROSEMIDE. [Concomitant]
     Active Substance: FUROSEMIDE
     Route: 048
  6. ERLEADA [Suspect]
     Active Substance: APALUTAMIDE
     Dosage: 2 PILLS A DAY
     Route: 048
     Dates: start: 20200110, end: 20200402
  7. LEVOTHYROXINE. [Concomitant]
     Active Substance: LEVOTHYROXINE
     Route: 048
  8. ASPIRIN                            /00002701/ [Concomitant]
     Active Substance: ASPIRIN
     Route: 048
  9. HYOSCYAMINE. [Concomitant]
     Active Substance: HYOSCYAMINE
     Route: 048
  10. MUPIROCIN. [Concomitant]
     Active Substance: MUPIROCIN
     Dosage: 2%
     Route: 061
  11. NEXIUM [Concomitant]
     Active Substance: ESOMEPRAZOLE MAGNESIUM
     Route: 048

REACTIONS (5)
  - Anxiety [Unknown]
  - Vision blurred [Unknown]
  - Headache [Unknown]
  - Transfusion [Unknown]
  - Oropharyngeal pain [Unknown]

NARRATIVE: CASE EVENT DATE: 201911
